FAERS Safety Report 9856649 (Version 2)
Quarter: 2014Q3

REPORT INFORMATION
  Report Type: Spontaneous
  Country: US (occurrence: US)
  Receive Date: 20140130
  Receipt Date: 20140728
  Transmission Date: 20150326
  Serious: Yes (Hospitalization, Other)
  Sender: FDA-Public Use
  Company Number: US-009507513-1401USA010066

PATIENT
  Sex: Female
  Weight: 91.61 kg

DRUGS (2)
  1. NUVARING [Suspect]
     Active Substance: ETHINYL ESTRADIOL\ETONOGESTREL
     Indication: PREMENSTRUAL SYNDROME
     Dosage: 3 WEEKS IN 1 WEEK OFF
     Route: 067
     Dates: start: 20050420, end: 20100410
  2. NUVARING [Suspect]
     Active Substance: ETHINYL ESTRADIOL\ETONOGESTREL
     Dosage: UNK
     Route: 067
     Dates: start: 20100416, end: 20101216

REACTIONS (19)
  - Renal stone removal [Unknown]
  - Asthma [Recovering/Resolving]
  - Asthma [Unknown]
  - Sinus operation [Unknown]
  - Cerebral artery stenosis [Unknown]
  - Diarrhoea [Recovered/Resolved]
  - Female sterilisation [Unknown]
  - Adverse drug reaction [Unknown]
  - Pulmonary embolism [Unknown]
  - Hyperlipidaemia [Unknown]
  - Cerebrovascular accident [Recovered/Resolved]
  - Chronic fatigue syndrome [Unknown]
  - Deep vein thrombosis [Recovered/Resolved]
  - Knee operation [Unknown]
  - Cholecystectomy [Unknown]
  - Headache [Recovered/Resolved]
  - Arthropathy [Recovered/Resolved]
  - Off label use [Unknown]
  - Nephrolithiasis [Unknown]

NARRATIVE: CASE EVENT DATE: 20050420
